FAERS Safety Report 23437213 (Version 2)
Quarter: 2024Q1

REPORT INFORMATION
  Report Type: Spontaneous
  Country: FR (occurrence: FR)
  Receive Date: 20240124
  Receipt Date: 20240214
  Transmission Date: 20240410
  Serious: Yes (Hospitalization, Other)
  Sender: FDA-Public Use
  Company Number: FR-AFSSAPS-AM2023001252

PATIENT
  Age: 72 Year
  Sex: Male
  Weight: 90 kg

DRUGS (25)
  1. PREDNISONE [Suspect]
     Active Substance: PREDNISONE
     Indication: Follicular lymphoma
     Dosage: 60 MILLIGRAM, (Q4D, EVERY FOURTH DAY TREATMENT)
     Route: 042
     Dates: start: 20181210, end: 20190402
  2. PREDNISONE [Suspect]
     Active Substance: PREDNISONE
     Dosage: 60 MG (2ND COURSE)
     Route: 042
     Dates: start: 20190102
  3. PREDNISONE [Suspect]
     Active Substance: PREDNISONE
     Dosage: 60 MG (3RD TREATMENT)
     Route: 042
     Dates: start: 20190123
  4. DOXORUBICIN [Suspect]
     Active Substance: DOXORUBICIN
     Indication: Follicular lymphoma
     Dosage: 588 MILLIGRAM (1 TOTAL)
     Route: 042
     Dates: start: 20181210, end: 20190402
  5. DOXORUBICIN [Suspect]
     Active Substance: DOXORUBICIN
     Dosage: 588 MG, 1X (2ND COURSE)
     Route: 042
     Dates: start: 20190201
  6. DOXORUBICIN [Suspect]
     Active Substance: DOXORUBICIN
     Dosage: 588 MG, 1X (3RD TREATMENT)
     Route: 042
     Dates: start: 20190123
  7. VINCRISTINE [Suspect]
     Active Substance: VINCRISTINE
     Indication: Follicular lymphoma
     Dosage: 12 MILLIGRAM (1 TOTAL)
     Route: 042
     Dates: start: 20181210, end: 20190402
  8. VINCRISTINE [Suspect]
     Active Substance: VINCRISTINE
     Dosage: 12 MILLIGRAM (1 TOTAL)
     Route: 042
     Dates: start: 20190102
  9. VINCRISTINE [Suspect]
     Active Substance: VINCRISTINE
     Dosage: 12 MG, 1X (3RD TREATMENT)
     Route: 042
     Dates: start: 20190123
  10. MABTHERA [Suspect]
     Active Substance: RITUXIMAB
     Indication: Follicular lymphoma
     Dosage: 750 MILLIGRAM (1400MG FROM 06/26/2019)
     Route: 042
     Dates: start: 20181210, end: 20210304
  11. MABTHERA [Suspect]
     Active Substance: RITUXIMAB
     Dosage: 750 MILLIGRAM EVERY 3 WEEKS (2ND COURSE
     Route: 042
     Dates: start: 20190201
  12. MABTHERA [Suspect]
     Active Substance: RITUXIMAB
     Dosage: 750 MILLIGRAM EVERY 3 WEEKS ((3RD TREATMENT
     Route: 042
     Dates: start: 20190123
  13. MABTHERA [Suspect]
     Active Substance: RITUXIMAB
     Dosage: UNK (EVERY 2 MONT
     Route: 042
     Dates: start: 20190626
  14. CYCLOPHOSPHAMIDE [Suspect]
     Active Substance: CYCLOPHOSPHAMIDE
     Indication: Follicular lymphoma
     Dosage: 8800 MILLIGRAM (1 TOTAL)
     Route: 042
     Dates: start: 20181210, end: 20190402
  15. CYCLOPHOSPHAMIDE [Suspect]
     Active Substance: CYCLOPHOSPHAMIDE
     Dosage: 8800 MILLIGRAM (8800 MG (3RD TREATMENT))
     Route: 042
     Dates: start: 20190123
  16. FILGRASTIM [Concomitant]
     Active Substance: FILGRASTIM
     Indication: Product used for unknown indication
     Dosage: UNK D6 TO D10
     Route: 065
  17. METFORMIN [Concomitant]
     Active Substance: METFORMIN HYDROCHLORIDE
     Indication: Product used for unknown indication
     Dosage: UNK
     Route: 065
  18. CETIRIZINE [Concomitant]
     Active Substance: CETIRIZINE HYDROCHLORIDE
     Indication: Product used for unknown indication
     Dosage: UNK
     Route: 065
  19. DIAMICRON [Concomitant]
     Indication: Product used for unknown indication
     Dosage: UNK
     Route: 065
  20. POLARAMINE [Concomitant]
     Active Substance: DEXCHLORPHENIRAMINE MALEATE
     Indication: Premedication
     Dosage: UNK
     Route: 065
  21. PERFALGAN [Concomitant]
     Active Substance: ACETAMINOPHEN
     Indication: Premedication
     Dosage: UNK
     Route: 065
  22. SITAGLIPTIN [Concomitant]
     Active Substance: SITAGLIPTIN
     Indication: Product used for unknown indication
     Dosage: UNK
     Route: 065
  23. SOLU-MEDROL [Concomitant]
     Active Substance: METHYLPREDNISOLONE SODIUM SUCCINATE
     Indication: Premedication
     Dosage: UNK
     Route: 065
  24. VALACYCLOVIR HYDROCHLORIDE [Concomitant]
     Active Substance: VALACYCLOVIR HYDROCHLORIDE
     Indication: Product used for unknown indication
     Dosage: UNK
     Route: 065
  25. ONDANSETRON [Concomitant]
     Active Substance: ONDANSETRON
     Indication: Premedication
     Dosage: UNK
     Route: 065

REACTIONS (3)
  - Cardiac failure [Recovered/Resolved with Sequelae]
  - Dilated cardiomyopathy [Recovered/Resolved with Sequelae]
  - Atrial flutter [Recovered/Resolved with Sequelae]

NARRATIVE: CASE EVENT DATE: 20191025
